FAERS Safety Report 25069697 (Version 6)
Quarter: 2025Q4

REPORT INFORMATION
  Report Type: Report from Study
  Country: US (occurrence: US)
  Receive Date: 20250312
  Receipt Date: 20251121
  Transmission Date: 20260117
  Serious: Yes (Hospitalization, Other)
  Sender: INSMED
  Company Number: US-INSMED, INC.-2025-00196-US

PATIENT
  Sex: Female

DRUGS (25)
  1. ARIKAYCE [Suspect]
     Active Substance: AMIKACIN
     Indication: Mycobacterium avium complex infection
     Dosage: 590 MILLIGRAM, QD
     Route: 055
     Dates: start: 202404
  2. ARIKAYCE [Suspect]
     Active Substance: AMIKACIN
     Dosage: 590 MILLIGRAM, QD
     Route: 055
     Dates: end: 2025
  3. LINEZOLID [Suspect]
     Active Substance: LINEZOLID
     Indication: Mycobacterium avium complex infection
     Dosage: UNK, UNK
     Route: 065
     Dates: start: 202505, end: 202505
  4. AZITHROMYCIN [Concomitant]
     Active Substance: AZITHROMYCIN
     Indication: Mycobacterium avium complex infection
     Dosage: 500 MILLIGRAM, QD
     Route: 065
     Dates: start: 20250729
  5. ETHAMBUTOL [Concomitant]
     Active Substance: ETHAMBUTOL HYDROCHLORIDE
     Indication: Mycobacterium avium complex infection
     Dosage: 700 MILLIGRAM, QD
     Route: 065
     Dates: start: 20250729
  6. AMIKACIN [Concomitant]
     Active Substance: AMIKACIN
     Indication: Mycobacterium avium complex infection
     Dosage: UNK, UNK
     Route: 065
     Dates: start: 20250729
  7. AZELASTINE [Concomitant]
     Active Substance: AZELASTINE
     Indication: Product used for unknown indication
     Dosage: 2 SPRAYS, QD
     Route: 045
     Dates: start: 20250831
  8. ZITHROMAX [Concomitant]
     Active Substance: AZITHROMYCIN DIHYDRATE
     Indication: Product used for unknown indication
     Dosage: 500 MILLIGRAM, QD
     Route: 048
     Dates: start: 20251016
  9. WELLBUTRIN XL [Concomitant]
     Active Substance: BUPROPION HYDROCHLORIDE
     Indication: Product used for unknown indication
     Dosage: 150 MILLIGRAM, QD
     Route: 048
     Dates: start: 20250225
  10. ZYRTEC [Concomitant]
     Active Substance: CETIRIZINE HYDROCHLORIDE
     Indication: Product used for unknown indication
     Dosage: 10 MILLIGRAM, QD
     Route: 048
     Dates: start: 20250526
  11. VITAMIN D3 [Concomitant]
     Active Substance: CHOLECALCIFEROL
     Indication: Product used for unknown indication
     Dosage: 1 DOSAGE FORM, QD
     Route: 048
     Dates: start: 20250831
  12. PULMOZYME [Concomitant]
     Active Substance: DORNASE ALFA
     Indication: Infective pulmonary exacerbation of cystic fibrosis
     Dosage: UNK
     Dates: start: 20250917
  13. EPINEPHRINE [Concomitant]
     Active Substance: EPINEPHRINE
     Indication: Anaphylactic reaction
     Dosage: 0.3 MILLIGRAM, PRN
     Dates: start: 20250831
  14. LEXAPRO [Concomitant]
     Active Substance: ESCITALOPRAM OXALATE
     Indication: Product used for unknown indication
     Dosage: 20 MILLIGRAM, QD
     Route: 048
     Dates: start: 20250225
  15. PEPCID [Concomitant]
     Active Substance: FAMOTIDINE
     Indication: Dyspepsia
     Dosage: 20 MILLIGRAM, QD
     Route: 048
     Dates: start: 20250526
  16. FLUTICASONE PROPIONATE [Concomitant]
     Active Substance: FLUTICASONE PROPIONATE
     Indication: Product used for unknown indication
     Dosage: 1 SPRAYIN EACH NOSTRIL BID
     Dates: start: 20250526
  17. LEVOXYL [Concomitant]
     Active Substance: LEVOTHYROXINE SODIUM
     Indication: Product used for unknown indication
     Dosage: 50 MICROGRAM, QD
     Route: 048
     Dates: start: 20250225
  18. THERA M PLUS [Concomitant]
     Indication: Product used for unknown indication
     Dosage: 1 UNK, QD
     Route: 048
     Dates: start: 20250808
  19. OLOPATADINE [Concomitant]
     Active Substance: OLOPATADINE
     Indication: Hypersensitivity
     Dosage: UNK
     Dates: start: 20250831
  20. OLOPATADINE [Concomitant]
     Active Substance: OLOPATADINE
     Indication: Eye pruritus
  21. REQUIP [Concomitant]
     Active Substance: ROPINIROLE HYDROCHLORIDE
     Indication: Product used for unknown indication
     Dosage: 0.25 MILLIGRAM, QD
     Route: 048
     Dates: start: 20250225
  22. SODIUM CHLORIDE [Concomitant]
     Active Substance: SODIUM CHLORIDE
     Indication: Product used for unknown indication
     Dosage: 4 MILLILITER, QD
     Route: 055
     Dates: start: 20250831
  23. THIAMINE [Concomitant]
     Active Substance: THIAMINE
     Indication: Product used for unknown indication
     Dosage: 100 MILLIGRAM, QD
     Route: 048
     Dates: start: 20250807
  24. XOPENEX HFA [Concomitant]
     Active Substance: LEVALBUTEROL TARTRATE
     Indication: Dyspnoea
     Dosage: 2 PUFFS, QD
     Route: 055
     Dates: start: 20250526
  25. XOPENEX HFA [Concomitant]
     Active Substance: LEVALBUTEROL TARTRATE
     Indication: Wheezing

REACTIONS (25)
  - Pulmonary cavitation [Recovering/Resolving]
  - Hospitalisation [Unknown]
  - Mycobacterial infection [Unknown]
  - Pseudomonas infection [Unknown]
  - Infective pulmonary exacerbation of cystic fibrosis [Unknown]
  - Malnutrition [Unknown]
  - Leukocytosis [Unknown]
  - Feeding disorder [Unknown]
  - Orthostatic intolerance [Unknown]
  - Brain fog [Unknown]
  - Tachycardia [Unknown]
  - Hypotension [Unknown]
  - Sputum discoloured [Unknown]
  - Abdominal discomfort [Unknown]
  - Malaise [Unknown]
  - Diarrhoea [Unknown]
  - Fatigue [Unknown]
  - Productive cough [Unknown]
  - Nausea [Unknown]
  - Dyspnoea [Unknown]
  - Cough [Unknown]
  - Intentional dose omission [Unknown]
  - Product dose omission issue [Unknown]
  - Therapy interrupted [Unknown]
  - Drug ineffective [Unknown]

NARRATIVE: CASE EVENT DATE: 20240101
